FAERS Safety Report 14084834 (Version 3)
Quarter: 2017Q4

REPORT INFORMATION
  Report Type: Report from Study
  Country: None (occurrence: RO)
  Receive Date: 20171013
  Receipt Date: 20171123
  Transmission Date: 20180321
  Serious: Yes (Hospitalization, Other)
  Sender: FDA-Public Use
  Company Number: RO-ABBVIE-17S-135-2128051-00

PATIENT
  Age: 78 Year
  Sex: Female
  Weight: 82 kg

DRUGS (13)
  1. SPIRONOLACTONE. [Concomitant]
     Active Substance: SPIRONOLACTONE
     Indication: HYPERTENSION
     Route: 048
  2. EXVIERA [Suspect]
     Active Substance: DASABUVIR
     Indication: HEPATIC CIRRHOSIS
     Route: 048
     Dates: start: 20170803, end: 20171025
  3. ESOMEPRAZOLE [Concomitant]
     Active Substance: ESOMEPRAZOLE
     Indication: GASTRITIS
     Route: 048
  4. EXVIERA [Suspect]
     Active Substance: DASABUVIR
     Indication: HEPATITIS C
  5. VIEKIRAX [Suspect]
     Active Substance: OMBITASVIR\PARITAPREVIR\RITONAVIR
     Indication: HEPATITIS C
     Route: 048
     Dates: start: 20170803, end: 20171025
  6. RAMIPRIL. [Concomitant]
     Active Substance: RAMIPRIL
     Indication: BLOOD PRESSURE FLUCTUATION
  7. NEBILET [Concomitant]
     Active Substance: NEBIVOLOL
     Indication: BLOOD PRESSURE FLUCTUATION
     Route: 048
  8. NEBIVOLOL. [Concomitant]
     Active Substance: NEBIVOLOL
     Indication: MYOCARDIAL ISCHAEMIA
  9. RAMIPRIL. [Concomitant]
     Active Substance: RAMIPRIL
     Indication: MYOCARDIAL ISCHAEMIA
  10. VIEKIRAX [Suspect]
     Active Substance: OMBITASVIR\PARITAPREVIR\RITONAVIR
     Indication: HEPATIC CIRRHOSIS
  11. NEBIVOLOL. [Concomitant]
     Active Substance: NEBIVOLOL
     Indication: HYPERTENSION
     Route: 048
  12. RAMIPRIL. [Concomitant]
     Active Substance: RAMIPRIL
     Indication: HYPERTENSION
     Route: 048
  13. SPIRONOLACTONE. [Concomitant]
     Active Substance: SPIRONOLACTONE
     Indication: MYOCARDIAL ISCHAEMIA

REACTIONS (5)
  - Enterocolitis [Recovered/Resolved]
  - Splenomegaly [Unknown]
  - Renal impairment [Unknown]
  - Gastrointestinal haemorrhage [Recovered/Resolved]
  - Hepatic neoplasm [Unknown]

NARRATIVE: CASE EVENT DATE: 20170916
